FAERS Safety Report 5051197-4 (Version None)
Quarter: 2006Q3

REPORT INFORMATION
  Report Type: 
  Country: None (occurrence: None)
  Receive Date: 20060714
  Receipt Date: 20060705
  Transmission Date: 20061208
  Serious: Yes (Death, Hospitalization)
  Sender: FDA-Public Use
  Company Number: US-JNJFOC-20050905877

PATIENT
  Sex: Male

DRUGS (7)
  1. LEVAQUIN [Suspect]
     Indication: INFECTION
     Route: 048
  2. LEVOFLOXACIN [Suspect]
     Indication: WOUND INFECTION
     Route: 042
  3. STOOL SOFTNER [Concomitant]
  4. NORVASC [Concomitant]
     Route: 048
  5. METOPROLOL TARTRATE [Concomitant]
  6. METRONIDAZOLE [Concomitant]
  7. VANCOMYCIN [Concomitant]

REACTIONS (20)
  - ABDOMINAL PAIN [None]
  - BLOOD CREATININE INCREASED [None]
  - BLOOD POTASSIUM DECREASED [None]
  - BLOOD SODIUM INCREASED [None]
  - CLOSTRIDIUM DIFFICILE COLITIS [None]
  - COLITIS [None]
  - COLITIS ISCHAEMIC [None]
  - CONSTIPATION [None]
  - CUTANEOUS ANTHRAX [None]
  - DEMENTIA [None]
  - HAEMATOCHEZIA [None]
  - HAEMATOCRIT DECREASED [None]
  - HAEMOGLOBIN DECREASED [None]
  - LARGE INTESTINAL ULCER [None]
  - ORAL INTAKE REDUCED [None]
  - PSEUDOMEMBRANOUS COLITIS [None]
  - PYREXIA [None]
  - RECTAL HAEMORRHAGE [None]
  - WEIGHT DECREASED [None]
  - WHITE BLOOD CELL COUNT DECREASED [None]
